FAERS Safety Report 22093133 (Version 1)
Quarter: 2023Q1

REPORT INFORMATION
  Report Type: Spontaneous
  Country: CN (occurrence: CN)
  Receive Date: 20230314
  Receipt Date: 20230314
  Transmission Date: 20230418
  Serious: Yes (Other)
  Sender: FDA-Public Use
  Company Number: CN-002147023-NVSC2023CN053263

PATIENT
  Age: 17 Year

DRUGS (1)
  1. BASILIXIMAB [Suspect]
     Active Substance: BASILIXIMAB
     Indication: Product used for unknown indication
     Dosage: 20 MG (DAY 0 AND DAY 4)
     Route: 065
     Dates: start: 20200114

REACTIONS (4)
  - Septic shock [Unknown]
  - Focal segmental glomerulosclerosis [Unknown]
  - Urinary tract infection [Unknown]
  - Capillaritis [Unknown]

NARRATIVE: CASE EVENT DATE: 20220703
